FAERS Safety Report 6609953-4 (Version None)
Quarter: 2010Q1

REPORT INFORMATION
  Report Type: 
  Country: None (occurrence: None)
  Receive Date: 20100302
  Receipt Date: 20100218
  Transmission Date: 20100710
  Serious: Yes (Death, Hospitalization)
  Sender: FDA-Public Use
  Company Number: US-ROCHE-540252

PATIENT
  Sex: Female
  Weight: 94.7 kg

DRUGS (29)
  1. TOCILIZUMAB [Suspect]
     Indication: RHEUMATOID ARTHRITIS
     Dosage: UNITS REPORTED AS 0.4 ML; 36 ML, FORM: INFUSION OVER ONE HOUR. UNITS REPORTED AS: 36.7 ML.
     Route: 042
     Dates: start: 20070212, end: 20071217
  2. TOCILIZUMAB [Suspect]
     Route: 042
     Dates: start: 20080307
  3. TOCILIZUMAB [Suspect]
     Route: 042
     Dates: start: 20091019
  4. TOCILIZUMAB [Suspect]
     Route: 042
     Dates: start: 20091116
  5. TOCILIZUMAB [Suspect]
     Route: 042
     Dates: start: 20091214
  6. TOCILIZUMAB [Suspect]
     Dosage: DOSE INTERRUPTED.
     Route: 042
     Dates: start: 20100111
  7. TOCILIZUMAB [Suspect]
     Route: 042
  8. PREDNISONE TAB [Suspect]
     Indication: DRUG USE FOR UNKNOWN INDICATION
     Route: 048
     Dates: start: 20070424
  9. METHOTREXATE [Suspect]
     Indication: DRUG USE FOR UNKNOWN INDICATION
     Route: 058
     Dates: start: 20071001
  10. DMARD [Concomitant]
  11. HYDROXYCHLOROQUINE SULFATE [Concomitant]
     Dates: start: 20030101
  12. TOPROL-XL [Concomitant]
     Dates: start: 20040101, end: 20080106
  13. TOPROL-XL [Concomitant]
     Dosage: DRUG NAME REPORTED AS: METOPROLOL.
     Dates: start: 20080107
  14. FOLIC ACID [Concomitant]
     Dates: start: 20000101, end: 20080113
  15. FOLIC ACID [Concomitant]
     Dates: start: 20080114
  16. LORCET-HD [Concomitant]
     Dosage: DRUG NAME: LORCET 10/650
     Dates: start: 20030101
  17. EQUATE [Concomitant]
     Dosage: DRUG NAME: EQUATE STOOL SOFTNER.
     Dates: start: 20051104
  18. MULTI-VITAMIN [Concomitant]
     Dates: start: 20070515
  19. OXYCODONE [Concomitant]
     Dosage: REPORTED AS: OXYCODONE ER.
     Dates: start: 20071023
  20. OXYCODONE [Concomitant]
     Dates: start: 20080114
  21. LASIX [Concomitant]
     Dates: start: 20071023, end: 20080113
  22. LASIX [Concomitant]
     Dates: start: 20080105
  23. LASIX [Concomitant]
     Dates: start: 20080114
  24. TUSSIN [Concomitant]
     Dosage: TUSSIN COUGH SYRUP
     Dates: start: 20071210, end: 20080214
  25. CODAL-DH [Concomitant]
     Dates: start: 20071218, end: 20080214
  26. OXYCONTIN [Concomitant]
     Dates: start: 20080105
  27. VITAMIN C [Concomitant]
     Dates: start: 20080114
  28. VITAMIN B-12 [Concomitant]
     Dates: start: 20080115
  29. MILK OF MAGNESIA TAB [Concomitant]
     Dosage: DOSE: 2 TBSP
     Dates: start: 20080508

REACTIONS (1)
  - CELLULITIS [None]
